FAERS Safety Report 18846419 (Version 1)
Quarter: 2021Q1

REPORT INFORMATION
  Report Type: Report from Study
  Country: US (occurrence: US)
  Receive Date: 20210203
  Receipt Date: 20210203
  Transmission Date: 20210419
  Serious: No
  Sender: FDA-Public Use
  Company Number: US-EXELIXIS-CABO-20028913

PATIENT
  Sex: Male

DRUGS (1)
  1. CABOMETYX [Suspect]
     Active Substance: CABOZANTINIB S-MALATE
     Indication: RENAL CELL CARCINOMA
     Dosage: 40 MG, 5 DAYS ON AND TWO DAYS OFF
     Dates: start: 20200221

REACTIONS (8)
  - Blood pressure increased [Recovering/Resolving]
  - Inappropriate schedule of product administration [Unknown]
  - Vomiting [Recovered/Resolved]
  - Weight decreased [Unknown]
  - Dry mouth [Unknown]
  - Seasonal allergy [Unknown]
  - Nausea [Recovered/Resolved]
  - Abdominal discomfort [Unknown]
